FAERS Safety Report 12899254 (Version 2)
Quarter: 2018Q3

REPORT INFORMATION
  Report Type: Spontaneous
  Country: CA (occurrence: CA)
  Receive Date: 20161101
  Receipt Date: 20180806
  Transmission Date: 20181010
  Serious: Yes (Other)
  Sender: FDA-Public Use
  Company Number: CA-CELGENEUS-CAN-2016105099

PATIENT
  Age: 76 Year
  Sex: Male
  Weight: 80.4 kg

DRUGS (9)
  1. POMALYST [Suspect]
     Active Substance: POMALIDOMIDE
     Indication: AMYLOIDOSIS
     Dosage: 2 MILLIGRAM
     Route: 048
  2. VELCADE [Suspect]
     Active Substance: BORTEZOMIB
     Indication: AMYLOIDOSIS
     Dosage: 1.5 MILLIGRAM/SQ. METER
     Route: 041
     Dates: end: 201509
  3. DEXAMETHASONE. [Suspect]
     Active Substance: DEXAMETHASONE
     Indication: AMYLOIDOSIS
     Dosage: 2 MILLIGRAM
     Route: 065
  4. REVLIMID [Suspect]
     Active Substance: LENALIDOMIDE
     Indication: AMYLOIDOSIS
     Route: 048
     Dates: end: 201509
  5. REVLIMID [Suspect]
     Active Substance: LENALIDOMIDE
     Indication: OFF LABEL USE
  6. POMALYST [Suspect]
     Active Substance: POMALIDOMIDE
     Indication: OFF LABEL USE
  7. THALOMID [Suspect]
     Active Substance: THALIDOMIDE
     Indication: OFF LABEL USE
  8. CYCLOPHOSPHAMIDE. [Suspect]
     Active Substance: CYCLOPHOSPHAMIDE
     Indication: AMYLOIDOSIS
     Route: 065
     Dates: end: 201509
  9. THALOMID [Suspect]
     Active Substance: THALIDOMIDE
     Indication: AMYLOIDOSIS
     Route: 048
     Dates: end: 201509

REACTIONS (6)
  - Oedema [Unknown]
  - Squamous cell carcinoma [Unknown]
  - Thrombocytopenia [Unknown]
  - Product use issue [Unknown]
  - Off label use [Unknown]
  - Amyloidosis [Unknown]
